FAERS Safety Report 8767405 (Version 3)
Quarter: 2012Q4

REPORT INFORMATION
  Report Type: 
  Country: US (occurrence: US)
  Receive Date: 20120904
  Receipt Date: 20121212
  Transmission Date: 20130627
  Serious: Yes (Disabling)
  Sender: FDA-Public Use
  Company Number: US-CELGENEUS-163-21880-12082666

PATIENT
  Age: 48 None
  Sex: Female

DRUGS (10)
  1. REVLIMID [Suspect]
     Indication: MULTIPLE MYELOMA
     Dosage: 5 Milligram
     Route: 048
     Dates: start: 201107, end: 201108
  2. REVLIMID [Suspect]
     Dosage: 5 Milligram
     Route: 048
     Dates: start: 201109, end: 2011
  3. REVLIMID [Suspect]
     Dosage: 10 Milligram
     Route: 048
     Dates: start: 20111208, end: 2011
  4. REVLIMID [Suspect]
     Dosage: 10 Milligram
     Route: 048
     Dates: start: 20120103, end: 201201
  5. REVLIMID [Suspect]
     Dosage: 5 Milligram
     Route: 048
     Dates: start: 20120426, end: 201206
  6. REVLIMID [Suspect]
     Dosage: 10 Milligram
     Route: 048
     Dates: start: 20120621, end: 201207
  7. REVLIMID [Suspect]
     Dosage: 5 Milligram
     Route: 048
     Dates: start: 20120817
  8. PRAVASTATIN [Suspect]
     Indication: HYPERCHOLESTEROLEMIA
     Dosage: 40 Milligram
     Route: 048
     Dates: start: 20110716, end: 20111216
  9. GABAPENTIN [Concomitant]
     Indication: POLYNEUROPATHY
     Dosage: 900 Milligram
     Route: 048
     Dates: start: 20110426, end: 20120122
  10. GABAPENTIN [Concomitant]
     Indication: NEUROPATHY PERIPHERAL
     Dosage: 1200 Milligram
     Route: 048
     Dates: start: 20110426, end: 20120122

REACTIONS (2)
  - Rhabdomyolysis [Recovered/Resolved]
  - Rash [Unknown]
